FAERS Safety Report 7340699-3 (Version None)
Quarter: 2011Q1

REPORT INFORMATION
  Report Type: 
  Country: None (occurrence: None)
  Receive Date: 20110309
  Receipt Date: 20110301
  Transmission Date: 20110831
  Serious: Yes (Death)
  Sender: FDA-Public Use
  Company Number: GB-PFIZER INC-GB-WYE-G06578910

PATIENT
  Age: 25 Year
  Sex: Female
  Weight: 48 kg

DRUGS (8)
  1. ETHANOL [Suspect]
     Dosage: 5 TIMES OVER THE DRIVING LIMIT
     Route: 048
     Dates: start: 20081209, end: 20081209
  2. NORTRIPTYLINE [Suspect]
     Dosage: UNK
     Route: 048
     Dates: start: 20081209, end: 20081209
  3. OXAZEPAM [Suspect]
     Dosage: UNK
     Route: 048
     Dates: start: 20081209, end: 20081209
  4. TEMAZEPAM [Suspect]
     Dosage: UNK
     Route: 048
     Dates: start: 20081209, end: 20081209
  5. CIPRALEX [Suspect]
     Indication: ANXIETY
     Dosage: 10.0 MG, 22X/TOT
     Route: 048
     Dates: start: 20081203, end: 20081209
  6. CIPRALEX [Suspect]
     Indication: DEPRESSION
  7. FLUOXETINE [Suspect]
     Dosage: UNK
     Route: 048
     Dates: start: 20081209, end: 20081209
  8. IBUPROFEN [Suspect]
     Dosage: UNK
     Route: 048
     Dates: start: 20081209, end: 20081209

REACTIONS (2)
  - COMPLETED SUICIDE [None]
  - INTENTIONAL OVERDOSE [None]
